FAERS Safety Report 9935804 (Version 1)
Quarter: 2014Q1

REPORT INFORMATION
  Report Type: Spontaneous
  Country: US (occurrence: US)
  Receive Date: 20140228
  Receipt Date: 20140228
  Transmission Date: 20141002
  Serious: No
  Sender: FDA-Public Use
  Company Number: US-AMGEN-USASP2013068371

PATIENT
  Age: 55 Year
  Sex: Female
  Weight: 81.63 kg

DRUGS (10)
  1. ENBREL [Suspect]
     Indication: PRODUCT USED FOR UNKNOWN INDICATION
     Dosage: 50 MG, QWK
     Route: 058
  2. LEXAPRO [Concomitant]
     Dosage: 10 MG, UNK
  3. METHOTREXATE [Concomitant]
     Dosage: 1 G, UNK
  4. LUNESTA [Concomitant]
     Dosage: 1 MG, UNK
  5. FOLIC ACID [Concomitant]
     Dosage: UNK
  6. NEXIUM                             /01479302/ [Concomitant]
     Dosage: 20 MG, UNK
  7. FLEXERIL                           /00428402/ [Concomitant]
     Dosage: 5 MG, UNK
  8. IBUPROFEN [Concomitant]
     Dosage: 200 MG, UNK
  9. HUMIRA [Concomitant]
     Dosage: UNK
  10. SIMPONI [Concomitant]
     Dosage: UNK

REACTIONS (1)
  - Therapeutic response decreased [Unknown]
